FAERS Safety Report 10158473 (Version 2)
Quarter: 2014Q2

REPORT INFORMATION
  Report Type: Spontaneous
  Country: NO (occurrence: NO)
  Receive Date: 20140507
  Receipt Date: 20140519
  Transmission Date: 20141212
  Serious: Yes (Death, Disabling, Other)
  Sender: FDA-Public Use
  Company Number: NO-RB-066862-14

PATIENT
  Sex: Male

DRUGS (3)
  1. SUBUTEX [Suspect]
     Indication: PRODUCT USED FOR UNKNOWN INDICATION
     Dosage: DOSING DETAILS UNKNOWN, PRESCRIBED FOR AROUND 1 YEAR 3-4 YEARS AGO, INJECTION
     Route: 065
     Dates: start: 2010, end: 2011
  2. POLYVINYLPYRROLIDONE [Suspect]
     Indication: PRODUCT USED FOR UNKNOWN INDICATION
     Dosage: DOSING DETAILS UNKNOWN, PRESCRIBED SINCE AROUND 2011 FOR 3 YEARS, INJECTION
     Route: 065
     Dates: start: 2011
  3. METHADONE [Suspect]
     Indication: PRODUCT USED FOR UNKNOWN INDICATION
     Dosage: DOSING DETAILS UNKNOWN, INJECTION
     Route: 065

REACTIONS (8)
  - Intentional product misuse [Not Recovered/Not Resolved]
  - Renal failure [Not Recovered/Not Resolved]
  - Lymphadenopathy [Not Recovered/Not Resolved]
  - Multi-organ failure [Fatal]
  - Weight decreased [Not Recovered/Not Resolved]
  - Anaemia [Not Recovered/Not Resolved]
  - Product deposit [Not Recovered/Not Resolved]
  - Incorrect route of drug administration [None]
